FAERS Safety Report 13525613 (Version 1)
Quarter: 2017Q2

REPORT INFORMATION
  Report Type: Spontaneous
  Country: BR (occurrence: BR)
  Receive Date: 20170508
  Receipt Date: 20170508
  Transmission Date: 20170830
  Serious: Yes (Death)
  Sender: FDA-Public Use
  Company Number: BR-JNJFOC-20170426495

PATIENT
  Age: 9 Month
  Sex: Female

DRUGS (8)
  1. METHYLPREDNISOLONE. [Suspect]
     Active Substance: METHYLPREDNISOLONE
     Indication: PYREXIA
     Route: 055
     Dates: start: 20170416
  2. TERBUTALINE [Suspect]
     Active Substance: TERBUTALINE
     Indication: PYREXIA
     Route: 055
     Dates: start: 20170416
  3. SODIUM BICARBONATE. [Suspect]
     Active Substance: SODIUM BICARBONATE
     Indication: PYREXIA
     Route: 055
     Dates: start: 20170416
  4. PARACETAMOL [Suspect]
     Active Substance: ACETAMINOPHEN
     Route: 055
  5. CEFTRIAXONE. [Suspect]
     Active Substance: CEFTRIAXONE
     Indication: PYREXIA
     Route: 055
     Dates: start: 20170416
  6. PARACETAMOL [Suspect]
     Active Substance: ACETAMINOPHEN
     Indication: PYREXIA
     Route: 055
     Dates: start: 20170416
  7. DIPYRONE [Suspect]
     Active Substance: DIPYRONE
     Indication: PYREXIA
     Route: 042
     Dates: start: 20170416
  8. INSULIN [Suspect]
     Active Substance: INSULIN NOS
     Indication: PYREXIA
     Route: 055
     Dates: start: 20170416

REACTIONS (3)
  - Lung disorder [Fatal]
  - Cardiac arrest [Fatal]
  - Incorrect route of drug administration [Fatal]

NARRATIVE: CASE EVENT DATE: 20170416
